FAERS Safety Report 5569479-6 (Version None)
Quarter: 2007Q4

REPORT INFORMATION
  Report Type: 
  Country: None (occurrence: None)
  Receive Date: 20071220
  Receipt Date: 20071211
  Transmission Date: 20080405
  Serious: Yes (Hospitalization)
  Sender: FDA-Public Use
  Company Number: US-SANOFI-SYNTHELABO-A03200706878

PATIENT
  Sex: Female

DRUGS (5)
  1. AMBIEN [Suspect]
     Indication: ANXIETY
     Route: 048
  2. EFFEXOR XR [Suspect]
     Indication: DEPRESSION
     Route: 048
  3. EFFEXOR XR [Suspect]
     Indication: ANXIETY
     Route: 048
  4. XANAX [Suspect]
     Indication: ANXIETY
     Route: 048
  5. DABIGATRAN ETEXILATE (BIBR 1048) [Suspect]
     Indication: CEREBROVASCULAR ACCIDENT
     Dosage: UNK
     Route: 048
     Dates: start: 20060607, end: 20060803

REACTIONS (2)
  - FALL [None]
  - HAEMATOMA [None]
